FAERS Safety Report 5989590-5 (Version None)
Quarter: 2008Q4

REPORT INFORMATION
  Report Type: 
  Country: None (occurrence: None)
  Receive Date: 20081208
  Receipt Date: 20081125
  Transmission Date: 20090506
  Serious: Yes (Hospitalization)
  Sender: FDA-Public Use
  Company Number: 230081K08BRA

PATIENT
  Age: 52 Year
  Sex: Female

DRUGS (4)
  1. REBIF [Suspect]
     Dosage: 44 MCG , 3 IN 1 WEEKS;  22 MCG, 3 IN 1 WEEKS
     Dates: start: 20070622, end: 20081006
  2. REBIF [Suspect]
     Dosage: 44 MCG , 3 IN 1 WEEKS;  22 MCG, 3 IN 1 WEEKS
     Dates: start: 20081006, end: 20081101
  3. REBIF [Suspect]
     Dosage: 44 MCG , 3 IN 1 WEEKS;  22 MCG, 3 IN 1 WEEKS
     Dates: start: 20081101
  4. AMITRIPTILIN (AMITRIPTYLINE /00002201/) [Concomitant]

REACTIONS (3)
  - HEMIPLEGIA [None]
  - INCORRECT DOSE ADMINISTERED [None]
  - OPHTHALMOPLEGIA [None]
